FAERS Safety Report 7589401-0 (Version None)
Quarter: 2011Q2

REPORT INFORMATION
  Report Type: 
  Country: None (occurrence: None)
  Receive Date: 20110603
  Receipt Date: 20110215
  Transmission Date: 20111010
  Serious: No
  Sender: FDA-Public Use
  Company Number: 2011SP007164

PATIENT
  Age: 49 Year
  Sex: Female

DRUGS (1)
  1. SAPHRIS [Suspect]
     Indication: BIPOLAR I DISORDER
     Dosage: 10 MG;SL
     Route: 060
     Dates: start: 20101220, end: 20110201

REACTIONS (1)
  - WEIGHT INCREASED [None]
